FAERS Safety Report 5287563-1 (Version None)
Quarter: 2007Q1

REPORT INFORMATION
  Report Type: 
  Country: None (occurrence: None)
  Receive Date: 20070126
  Receipt Date: 20061027
  Transmission Date: 20070707
  Serious: No
  Sender: FDA-Public Use
  Company Number: 2006CT000827

PATIENT
  Age: 63 Year
  Sex: Female
  Weight: 66.6788 kg

DRUGS (19)
  1. VENTAVIS [Suspect]
     Indication: PULMONARY HYPERTENSION
     Dosage: 2.5 UG;6XD;INH
     Route: 055
     Dates: start: 20061027
  2. SILDENAFIL CITRATE [Suspect]
     Indication: PULMONARY HYPERTENSION
     Dosage: SEE IMAGE
     Route: 048
     Dates: end: 20061027
  3. SILDENAFIL CITRATE [Suspect]
     Indication: PULMONARY HYPERTENSION
     Dosage: SEE IMAGE
     Route: 048
     Dates: start: 20061027
  4. ADVAIR DISKUS 100/50 [Concomitant]
  5. ALLOPURINOL [Concomitant]
  6. WARFARIN SODIUM [Concomitant]
  7. CRESTOR [Concomitant]
  8. DIGOXIN [Concomitant]
  9. VALSARTAN [Concomitant]
  10. FUROSEMIDE [Concomitant]
  11. OXYGEN [Concomitant]
  12. PREDNISOLONE [Concomitant]
  13. PREVACID [Concomitant]
  14. RIMANTADINE HCL [Concomitant]
  15. SINGULAIR [Concomitant]
  16. ULTRACET [Concomitant]
  17. XALATAN [Concomitant]
  18. SALBUTAMOL/IPRATROPIUM BROMIDE [Concomitant]
  19. DUONEB [Concomitant]

REACTIONS (3)
  - FLUSHING [None]
  - HEADACHE [None]
  - OCULAR HYPERAEMIA [None]
